FAERS Safety Report 25587581 (Version 2)
Quarter: 2025Q3

REPORT INFORMATION
  Report Type: Spontaneous
  Country: US (occurrence: US)
  Receive Date: 20250721
  Receipt Date: 20250722
  Transmission Date: 20251020
  Serious: Yes (Hospitalization)
  Sender: PFIZER
  Company Number: US-PFIZER INC-202500013160

PATIENT
  Age: 67 Year
  Sex: Female

DRUGS (3)
  1. TUKYSA [Suspect]
     Active Substance: TUCATINIB
     Indication: HER2 positive breast cancer
     Dosage: TAKE TWO 150MG ORALLY TWICE DAILY/150 MG TABLETS TAKE 300 MG BID (ORALLY)
     Route: 048
  2. XELODA [Concomitant]
     Active Substance: CAPECITABINE
     Indication: HER2 positive breast cancer
  3. HERCEPTIN [Concomitant]
     Active Substance: TRASTUZUMAB
     Indication: HER2 positive breast cancer

REACTIONS (3)
  - Labyrinthitis [Unknown]
  - Dizziness [Unknown]
  - Off label use [Unknown]
